FAERS Safety Report 11612025 (Version 2)
Quarter: 2015Q4

REPORT INFORMATION
  Report Type: Spontaneous
  Country: US (occurrence: US)
  Receive Date: 20151008
  Receipt Date: 20151106
  Transmission Date: 20160304
  Serious: Yes (Hospitalization)
  Sender: FDA-Public Use
  Company Number: US-INCYTE CORPORATION-2015IN005011

PATIENT
  Age: 55 Year
  Sex: Female

DRUGS (5)
  1. JAKAFI [Suspect]
     Active Substance: RUXOLITINIB
     Dosage: 5 MG (2 TABLETS AM) AND 5 MG (2 TABLETS PM), SKIP A DAY THEN REPEAT
     Route: 048
     Dates: start: 201510, end: 201510
  2. JAKAFI [Suspect]
     Active Substance: RUXOLITINIB
     Dosage: 10 MG, QD
     Route: 048
     Dates: end: 20150928
  3. JAKAFI [Suspect]
     Active Substance: RUXOLITINIB
     Dosage: 5 MG 1 TABLET AM, THEN SKIP A DAY
     Route: 048
     Dates: start: 20151003, end: 201510
  4. JAKAFI [Suspect]
     Active Substance: RUXOLITINIB
     Dosage: 5 MG 1 TABLET AM/ ALTERNATE 5 MG 1 TABLET BID
     Route: 048
     Dates: start: 20151029
  5. JAKAFI [Suspect]
     Active Substance: RUXOLITINIB
     Indication: MYELOFIBROSIS
     Dosage: 5 MG, QD
     Route: 048
     Dates: start: 20140520

REACTIONS (4)
  - Incorrect dose administered [Unknown]
  - Dehydration [Unknown]
  - Swelling [Unknown]
  - Fatigue [Unknown]

NARRATIVE: CASE EVENT DATE: 20150928
